FAERS Safety Report 4531437-8 (Version None)
Quarter: 2004Q4

REPORT INFORMATION
  Report Type: 
  Country: None (occurrence: None)
  Receive Date: 20041216
  Receipt Date: 20041210
  Transmission Date: 20050328
  Serious: Yes (Other)
  Sender: FDA-Public Use
  Company Number: S04-USA-07431-01

PATIENT
  Age: 80 Year
  Sex: Female

DRUGS (8)
  1. NAMENDA [Suspect]
     Indication: DEMENTIA ALZHEIMER'S TYPE
     Dosage: 5 MG BID PO
     Route: 048
     Dates: start: 20040601
  2. ARICEPT [Suspect]
     Indication: DEMENTIA ALZHEIMER'S TYPE
     Dosage: 10 MG QD PO
     Route: 048
     Dates: start: 20041101, end: 20041101
  3. ARICEPT [Suspect]
     Indication: DEMENTIA ALZHEIMER'S TYPE
     Dosage: 5 MG, QD PO
     Route: 048
     Dates: start: 20041101
  4. LIPITOR [Concomitant]
  5. ASPIRIN [Concomitant]
  6. CITRACAL (CALCIUM CITRATE) [Concomitant]
  7. FOLIC ACID [Concomitant]
  8. MULTI-VITAMIN [Concomitant]

REACTIONS (4)
  - BACK PAIN [None]
  - DRUG EFFECT DECREASED [None]
  - POLLAKIURIA [None]
  - SPINAL COMPRESSION FRACTURE [None]
